FAERS Safety Report 15004091 (Version 1)
Quarter: 2018Q2

REPORT INFORMATION
  Report Type: Spontaneous
  Country: FR (occurrence: FR)
  Receive Date: 20180613
  Receipt Date: 20180613
  Transmission Date: 20180711
  Serious: Yes (Death)
  Sender: FDA-Public Use
  Company Number: FR-TEVA-2018-FR-905423

PATIENT
  Age: 80 Year
  Sex: Female

DRUGS (1)
  1. PACLITAXEL. [Suspect]
     Active Substance: PACLITAXEL
     Indication: LUNG ADENOCARCINOMA
     Dosage: UNSPECIFIED
     Route: 048
     Dates: start: 20180327, end: 20180327

REACTIONS (1)
  - Large intestine perforation [Fatal]

NARRATIVE: CASE EVENT DATE: 20180409
